FAERS Safety Report 9786024 (Version 1)
Quarter: 2013Q4

REPORT INFORMATION
  Report Type: Spontaneous
  Country: GB (occurrence: GB)
  Receive Date: 20131227
  Receipt Date: 20131227
  Transmission Date: 20140711
  Serious: Yes (Other)
  Sender: FDA-Public Use
  Company Number: GB-PFIZER INC-2013368316

PATIENT
  Age: 52 Year
  Sex: Male
  Weight: 63 kg

DRUGS (16)
  1. ZYVOX [Suspect]
     Indication: ENTEROCOCCAL INFECTION
     Dosage: 600MG TWICE DAILY 2 DOSES ON 23/11 ONE DOSE ON 24/11.
     Route: 042
     Dates: start: 20131123, end: 20131124
  2. CUBICIN [Suspect]
     Indication: ENTEROCOCCAL INFECTION
     Dosage: 300 MG, DAILY
     Route: 042
     Dates: start: 20131124, end: 20131126
  3. CUBICIN [Suspect]
     Dosage: 500 MG, DAILY
     Dates: start: 20131128
  4. PROGRAF [Suspect]
     Indication: RENAL TRANSPLANT
     Dosage: 0.5 MG, 2X/DAY
     Route: 048
     Dates: start: 20131016
  5. MEROPENEM [Concomitant]
     Dosage: UNK
  6. METRONIDAZOLE [Concomitant]
     Dosage: UNK
  7. VALPROIC ACID [Concomitant]
     Dosage: UNK
  8. MYFORTIC [Concomitant]
     Dosage: UNK
  9. CO-TRIMOXAZOLE [Concomitant]
     Dosage: UNK
  10. ISONIAZID [Concomitant]
     Dosage: UNK
  11. ALLOPURINOL [Concomitant]
     Dosage: UNK
  12. SERETIDE [Concomitant]
     Dosage: UNK
  13. OMEPRAZOLE [Concomitant]
     Dosage: UNK
  14. SUBCUVIA [Concomitant]
     Dosage: UNK
  15. WARFARIN [Concomitant]
     Dosage: UNK
  16. PARACETAMOL [Concomitant]
     Dosage: UNK

REACTIONS (4)
  - Rhabdomyolysis [Recovered/Resolved]
  - Renal failure acute [Recovered/Resolved]
  - Muscular weakness [Unknown]
  - Blood creatine phosphokinase increased [Recovered/Resolved]
